FAERS Safety Report 22902460 (Version 4)
Quarter: 2023Q4

REPORT INFORMATION
  Report Type: Spontaneous
  Country: US (occurrence: US)
  Receive Date: 20230904
  Receipt Date: 20231218
  Transmission Date: 20240110
  Serious: Yes (Hospitalization)
  Sender: FDA-Public Use
  Company Number: US-BRISTOL-MYERS SQUIBB COMPANY-2023-124669

PATIENT
  Age: 90 Year
  Sex: Male
  Weight: 80.29 kg

DRUGS (2)
  1. POMALYST [Suspect]
     Active Substance: POMALIDOMIDE
     Indication: Plasma cell myeloma
     Dosage: 3WKSON,1WKOFF
     Route: 048
  2. POMALYST [Suspect]
     Active Substance: POMALIDOMIDE
     Dosage: 3WKSON,1WKOFF
     Route: 048
     Dates: end: 20231031

REACTIONS (7)
  - Dyspnoea [Recovering/Resolving]
  - Cardiac disorder [Recovering/Resolving]
  - Peripheral swelling [Unknown]
  - Asthenia [Unknown]
  - Fall [Unknown]
  - Nasopharyngitis [Recovered/Resolved]
  - Off label use [Unknown]

NARRATIVE: CASE EVENT DATE: 20230101
